FAERS Safety Report 11375017 (Version 2)
Quarter: 2017Q3

REPORT INFORMATION
  Report Type: Spontaneous
  Country: JP (occurrence: JP)
  Receive Date: 20150813
  Receipt Date: 20170706
  Transmission Date: 20171127
  Serious: Yes (Other)
  Sender: FDA-Public Use
  Company Number: JP-SUN PHARMACEUTICAL INDUSTRIES LTD-2015R1-101300

PATIENT
  Age: 45 Year
  Sex: Female

DRUGS (1)
  1. DOCETAXEL. [Suspect]
     Active Substance: DOCETAXEL
     Indication: METASTASIS
     Dosage: FOURTEEN COURSES OF CYCLICAL THERAPY [105 MG/KG BODY WEIGHT (70 MG/M2) EVERY 3 WEEKS]
     Route: 065

REACTIONS (2)
  - Neuralgia [Unknown]
  - Therapeutic response decreased [Unknown]
